FAERS Safety Report 5129009-X (Version None)
Quarter: 2006Q4

REPORT INFORMATION
  Report Type: 
  Country: None (occurrence: None)
  Receive Date: 20061017
  Receipt Date: 20061013
  Transmission Date: 20070319
  Serious: Yes (Hospitalization)
  Sender: FDA-Public Use
  Company Number: AU-BOEHRINGER INGELHEIM PHARMACEUTICALS, INC.-2006-BP-12004AU

PATIENT
  Sex: Male

DRUGS (1)
  1. ASASANTIN CAPSULES [Suspect]

REACTIONS (6)
  - COLLAPSE OF LUNG [None]
  - DYSPHAGIA [None]
  - FALL [None]
  - INFECTION [None]
  - INTESTINAL OBSTRUCTION [None]
  - RIB FRACTURE [None]
